FAERS Safety Report 20079339 (Version 2)
Quarter: 2021Q4

REPORT INFORMATION
  Report Type: Other
  Country: US (occurrence: None)
  Receive Date: 20211117
  Receipt Date: 20211124
  Transmission Date: 20220303
  Serious: Yes (Other)
  Sender: FDA-Public Use
  Company Number: US-ROCHE-2951159

PATIENT
  Age: 60 Year
  Sex: Female
  Weight: 99.880 kg

DRUGS (14)
  1. OCREVUS [Suspect]
     Active Substance: OCRELIZUMAB
     Indication: Multiple sclerosis
     Dosage: EVERY 6 MONTHS ;ONGOING: NO
     Route: 042
     Dates: end: 202104
  2. ATENOLOL [Concomitant]
     Active Substance: ATENOLOL
     Indication: Palpitations
     Dosage: STARTED 30 YEARS AGO ;ONGOING: YES
  3. CYMBALTA [Concomitant]
     Active Substance: DULOXETINE HYDROCHLORIDE
     Dosage: UNKNOWN START DATE ;ONGOING: YES
     Route: 065
  4. ESTRADIOL [Concomitant]
     Active Substance: ESTRADIOL
     Indication: Hysterectomy
     Dosage: YES
     Route: 065
     Dates: start: 2006
  5. METOCLOPRAMIDE [Concomitant]
     Active Substance: METOCLOPRAMIDE
     Indication: Migraine
     Dosage: STARTED ABOUT 3 YEARS AGO; AS NEEDED ;ONGOING: YES
     Route: 065
  6. IMITREX [Concomitant]
     Active Substance: SUMATRIPTAN SUCCINATE
     Indication: Migraine
     Dosage: UNKNOWN START DATE; AS NEEDED ;ONGOING: YES
     Route: 065
  7. PRILOSEC [Concomitant]
     Active Substance: OMEPRAZOLE MAGNESIUM
     Indication: Dyspepsia
     Dosage: STARTED 10 YEARS AGO; TAKE 2 ONCE A DAY ;ONGOING: YES
     Route: 065
  8. PROVIGIL [Concomitant]
     Active Substance: MODAFINIL
     Dosage: STARTED 2 YEARS AGO; 2 ONCE A DAY ;ONGOING: YES
     Route: 065
  9. ROPINIROLE [Concomitant]
     Active Substance: ROPINIROLE
     Indication: Pain in extremity
     Dosage: STARTED 8 YEARS AGO; TAKE 1 AT BEDTIME ;ONGOING: YES
     Route: 065
  10. TOPIRAMATE [Concomitant]
     Active Substance: TOPIRAMATE
     Indication: Migraine prophylaxis
     Dosage: STARTED 10 YEARS AGO; TAKE 3 TIMES A DAY ;ONGOING: YES
     Route: 065
  11. TRAZODONE [Concomitant]
     Active Substance: TRAZODONE HYDROCHLORIDE
     Indication: Insomnia
     Dosage: STARTED 10 YEARS AGO; TAKE 1 AT BED TIME ;ONGOING: YES
     Route: 065
  12. ZOFRAN [Concomitant]
     Active Substance: ONDANSETRON HYDROCHLORIDE
     Indication: Nausea
     Dosage: UNKNOWN WHEN STARTED; TAKE AS NEEDED ;ONGOING: YES
     Route: 065
  13. VITAMIN D3 [Concomitant]
     Active Substance: CHOLECALCIFEROL
     Indication: Multiple sclerosis
     Dosage: STARTED 30 YEARS AGO ;ONGOING: YES
     Route: 065
  14. SUMATRIPTAN [Concomitant]
     Active Substance: SUMATRIPTAN

REACTIONS (2)
  - Clostridium difficile infection [Not Recovered/Not Resolved]
  - Nausea [Not Recovered/Not Resolved]

NARRATIVE: CASE EVENT DATE: 20211001
